FAERS Safety Report 19563683 (Version 1)
Quarter: 2021Q3

REPORT INFORMATION
  Report Type: Spontaneous
  Country: AW (occurrence: AW)
  Receive Date: 20210716
  Receipt Date: 20210716
  Transmission Date: 20211014
  Serious: Yes (Other)
  Sender: FDA-Public Use
  Company Number: AW-SUN PHARMACEUTICAL INDUSTRIES LTD-2021RR-304662

PATIENT
  Age: 41 Year
  Sex: Female

DRUGS (4)
  1. CIPROFLOXACIN. [Suspect]
     Active Substance: CIPROFLOXACIN
     Indication: SERRATIA INFECTION
     Dosage: UNK
     Route: 048
  2. ERTAPENEM. [Suspect]
     Active Substance: ERTAPENEM SODIUM
     Indication: SERRATIA INFECTION
     Dosage: UNK. TAKEN WITH CIPROFLOXACIN
     Route: 065
  3. CEFEPIME [Suspect]
     Active Substance: CEFEPIME HYDROCHLORIDE
     Indication: SERRATIA INFECTION
     Dosage: UNK
     Route: 065
  4. GENTAMICIN. [Suspect]
     Active Substance: GENTAMICIN
     Indication: SERRATIA INFECTION
     Dosage: UNK, TAKEN WITH CIPROFLOXACIN
     Route: 065

REACTIONS (1)
  - Pathogen resistance [Unknown]
